FAERS Safety Report 12857562 (Version 2)
Quarter: 2016Q4

REPORT INFORMATION
  Report Type: Report from Study
  Country: None (occurrence: NL)
  Receive Date: 20161018
  Receipt Date: 20161109
  Transmission Date: 20170207
  Serious: Yes (Hospitalization, Other)
  Sender: FDA-Public Use
  Company Number: NL-ABBVIE-16K-114-1755764-00

PATIENT
  Age: 83 Year
  Sex: Male

DRUGS (1)
  1. DUODOPA [Suspect]
     Active Substance: CARBIDOPA\LEVODOPA
     Indication: PARKINSON^S DISEASE
     Dosage: MD: 12, CD: 2.6, ED: 2
     Route: 050
     Dates: start: 20141211

REACTIONS (3)
  - Hip fracture [Not Recovered/Not Resolved]
  - Fall [Recovered/Resolved]
  - Wound infection [Not Recovered/Not Resolved]

NARRATIVE: CASE EVENT DATE: 20161006
